FAERS Safety Report 6756973-5 (Version None)
Quarter: 2010Q2

REPORT INFORMATION
  Report Type: 
  Country: None (occurrence: None)
  Receive Date: 20100604
  Receipt Date: 20100528
  Transmission Date: 20101027
  Serious: Yes (Other)
  Sender: FDA-Public Use
  Company Number: US-GENENTECH-302367

PATIENT
  Sex: Female

DRUGS (1)
  1. RANIBIZUMAB [Suspect]
     Indication: MACULAR DEGENERATION
     Dosage: 0.05 UNK, 1/MONTH
     Route: 042
     Dates: start: 20091117, end: 20100318

REACTIONS (1)
  - VISUAL ACUITY REDUCED [None]
